FAERS Safety Report 6747890-5 (Version None)
Quarter: 2010Q2

REPORT INFORMATION
  Report Type: 
  Country: None (occurrence: None)
  Receive Date: 20100528
  Receipt Date: 20100518
  Transmission Date: 20101027
  Serious: Yes (Death)
  Sender: FDA-Public Use
  Company Number: BE-ABBOTT-10P-013-0645221-00

PATIENT

DRUGS (1)
  1. LUCRIN DEPOT 11.25 MG [Suspect]
     Indication: DRUG USE FOR UNKNOWN INDICATION
     Dates: start: 20090611, end: 20100301

REACTIONS (1)
  - LUNG NEOPLASM MALIGNANT [None]
